FAERS Safety Report 20237133 (Version 2)
Quarter: 2022Q1

REPORT INFORMATION
  Report Type: Report from Study
  Country: CA (occurrence: CA)
  Receive Date: 20211228
  Receipt Date: 20220127
  Transmission Date: 20220423
  Serious: Yes (Death, Other)
  Sender: FDA-Public Use
  Company Number: CA-BAYER-2021A273969

PATIENT

DRUGS (2)
  1. EYLEA [Suspect]
     Active Substance: AFLIBERCEPT
     Indication: Diabetic retinal oedema
     Dosage: UNK, FIRST DOSE; 40 MG/ML
     Dates: start: 20210407, end: 20210407
  2. EYLEA [Suspect]
     Active Substance: AFLIBERCEPT
     Dosage: UNK, SECOND DOSE
     Dates: start: 20210510, end: 20210510

REACTIONS (1)
  - Death [Fatal]

NARRATIVE: CASE EVENT DATE: 20210704
